FAERS Safety Report 7141879-2 (Version None)
Quarter: 2010Q4

REPORT INFORMATION
  Report Type: 
  Country: None (occurrence: None)
  Receive Date: 20101207
  Receipt Date: 20101201
  Transmission Date: 20110411
  Serious: Yes (Other)
  Sender: FDA-Public Use
  Company Number: CA-ROCHE-746042

PATIENT
  Sex: Male
  Weight: 89.8 kg

DRUGS (13)
  1. TOCILIZUMAB [Suspect]
     Indication: RHEUMATOID ARTHRITIS
     Route: 042
     Dates: start: 20100709
  2. RISEDRONATE SODIUM [Concomitant]
     Dosage: DRUG NAME:TEVA-RISEDORNETE
  3. FOLIC ACID [Concomitant]
  4. TAMSULOSIN [Concomitant]
  5. LEFLUNOMIDE [Concomitant]
  6. PANTOPRAZOLE [Concomitant]
  7. CELEBREX [Concomitant]
  8. TEMAZEPAM [Concomitant]
  9. METHOTREXATE [Concomitant]
  10. CALTRATE PLUS [Concomitant]
  11. VIT D [Concomitant]
  12. VITAMIN A [Concomitant]
  13. B COMPLEX 100 [Concomitant]

REACTIONS (1)
  - MYOCARDIAL INFARCTION [None]
